FAERS Safety Report 15574271 (Version 1)
Quarter: 2018Q4

REPORT INFORMATION
  Report Type: Spontaneous
  Country: CN (occurrence: CN)
  Receive Date: 20181101
  Receipt Date: 20181101
  Transmission Date: 20190205
  Serious: Yes (Other)
  Sender: FDA-Public Use
  Company Number: CN-ROCHE-2208077

PATIENT
  Age: 69 Year
  Sex: Female

DRUGS (5)
  1. OMEPRAZOLE MAGNESIUM. [Suspect]
     Active Substance: OMEPRAZOLE MAGNESIUM
     Indication: PROPHYLAXIS
     Route: 065
     Dates: start: 20180813
  2. PARACETAMOL [Suspect]
     Active Substance: ACETAMINOPHEN
     Indication: PROPHYLAXIS
     Route: 065
     Dates: start: 20180813
  3. MABTHERA [Suspect]
     Active Substance: RITUXIMAB
     Indication: ENDOCRINE OPHTHALMOPATHY
     Route: 041
     Dates: start: 20180813, end: 20180813
  4. METHYLPREDNISOLONE SODIUM SUCCINATE. [Suspect]
     Active Substance: METHYLPREDNISOLONE SODIUM SUCCINATE
     Indication: PRODUCT USED FOR UNKNOWN INDICATION
     Route: 041
     Dates: start: 20180813
  5. CHLORPHENIRAMINE MALEATE. [Suspect]
     Active Substance: CHLORPHENIRAMINE MALEATE
     Indication: PROPHYLAXIS
     Route: 065
     Dates: start: 20180813

REACTIONS (3)
  - Intentional product use issue [Unknown]
  - Off label use [Unknown]
  - Blindness transient [Recovering/Resolving]

NARRATIVE: CASE EVENT DATE: 20180813
